FAERS Safety Report 15114154 (Version 2)
Quarter: 2018Q3

REPORT INFORMATION
  Report Type: Spontaneous
  Country: AU (occurrence: AU)
  Receive Date: 20180706
  Receipt Date: 20180717
  Transmission Date: 20181010
  Serious: Yes (Hospitalization, Other)
  Sender: FDA-Public Use
  Company Number: AU-LUPIN PHARMACEUTICALS INC.-2018-04771

PATIENT
  Age: 59 Year
  Sex: Female

DRUGS (5)
  1. RISPERIDONE. [Suspect]
     Active Substance: RISPERIDONE
     Indication: PSYCHOTIC DISORDER
     Dosage: 2 MG, QD
     Route: 065
  2. SERTRALINE [Concomitant]
     Active Substance: SERTRALINE HYDROCHLORIDE
     Dosage: 100 MG, QD
     Route: 065
  3. SERTRALINE [Concomitant]
     Active Substance: SERTRALINE HYDROCHLORIDE
     Indication: PSYCHOTIC DISORDER
     Dosage: UNK
     Route: 065
  4. QUETIAPINE FUMARATE EXTENDED?RELEASE [Suspect]
     Active Substance: QUETIAPINE FUMARATE
     Dosage: 600 MG, QD (ER)
     Route: 065
  5. QUETIAPINE FUMARATE EXTENDED?RELEASE [Suspect]
     Active Substance: QUETIAPINE FUMARATE
     Indication: PSYCHOTIC DISORDER
     Dosage: 200 MG, UNK, EXTENDED?RELEASE
     Route: 065

REACTIONS (10)
  - Withdrawal syndrome [Recovered/Resolved]
  - Mutism [Recovered/Resolved]
  - Poor quality sleep [Recovered/Resolved]
  - Negativism [Recovered/Resolved]
  - Decreased appetite [Recovered/Resolved]
  - Parkinsonism [Recovered/Resolved]
  - Mood swings [Recovered/Resolved]
  - Torticollis [Recovered/Resolved]
  - Muscle rigidity [Recovered/Resolved]
  - Decreased activity [Recovered/Resolved]
